FAERS Safety Report 10297158 (Version 1)
Quarter: 2014Q3

REPORT INFORMATION
  Report Type: Spontaneous
  Country: FR (occurrence: FR)
  Receive Date: 20140711
  Receipt Date: 20140711
  Transmission Date: 20150326
  Serious: Yes (Life-Threatening, Hospitalization)
  Sender: FDA-Public Use
  Company Number: FR-009507513-1407FRA001116

PATIENT
  Age: 81 Year
  Sex: Female

DRUGS (7)
  1. OFLOCET (OFLOXACIN) [Suspect]
     Active Substance: OFLOXACIN
     Dosage: UNK
     Dates: start: 20140513, end: 20140519
  2. ASCABIOL [Suspect]
     Active Substance: BENZYL BENZOATE
     Dosage: UNK
     Dates: start: 20140501, end: 20140507
  3. RIFAMPIN. [Suspect]
     Active Substance: RIFAMPIN
     Dosage: UNK
     Dates: start: 20140506, end: 20140519
  4. VANCOMYCIN [Suspect]
     Active Substance: VANCOMYCIN
     Dosage: UNK
     Dates: start: 20140430, end: 20140430
  5. STROMECTOL [Suspect]
     Active Substance: IVERMECTIN
     Dosage: UNK
     Dates: start: 20140501, end: 20140506
  6. GENTAMICIN SULFATE [Suspect]
     Active Substance: GENTAMICIN SULFATE
     Dosage: UNK
     Route: 065
     Dates: start: 20140501, end: 20140501
  7. BRISTOPEN [Suspect]
     Active Substance: OXACILLIN SODIUM
     Dosage: UNK
     Route: 042
     Dates: start: 20140501, end: 20140513

REACTIONS (1)
  - Dermatitis exfoliative [Recovered/Resolved]

NARRATIVE: CASE EVENT DATE: 20140516
